FAERS Safety Report 9944673 (Version 1)
Quarter: 2014Q1

REPORT INFORMATION
  Report Type: Report from Study
  Country: US (occurrence: US)
  Receive Date: 20140303
  Receipt Date: 20140303
  Transmission Date: 20141002
  Serious: No
  Sender: FDA-Public Use
  Company Number: US-ABBVIE-13P-163-1051928-00

PATIENT
  Sex: Female
  Weight: 77.18 kg

DRUGS (10)
  1. HUMIRA [Suspect]
     Indication: RHEUMATOID ARTHRITIS
     Dates: start: 2004
  2. HUMIRA [Suspect]
  3. HUMIRA [Suspect]
  4. LANTUS INSULIN [Concomitant]
     Indication: DIABETES MELLITUS
  5. NOVOLOG INSULIN [Concomitant]
     Indication: DIABETES MELLITUS
  6. IRBESARTAN [Concomitant]
     Indication: HYPERTENSION
  7. PREDNISONE [Concomitant]
     Indication: RHEUMATOID ARTHRITIS
  8. FOLIC ACID [Concomitant]
     Indication: RHEUMATOID ARTHRITIS
  9. SERTRALINE [Concomitant]
     Indication: DEPRESSION
  10. METHOTREXATE [Concomitant]
     Indication: RHEUMATOID ARTHRITIS

REACTIONS (2)
  - Drug effect incomplete [Recovered/Resolved]
  - Drug ineffective [Recovered/Resolved]
